FAERS Safety Report 8539757 (Version 2)
Quarter: 2012Q4

REPORT INFORMATION
  Report Type: 
  Country: US (occurrence: US)
  Receive Date: 20120502
  Receipt Date: 20121119
  Transmission Date: 20130627
  Serious: Yes (Hospitalization)
  Sender: FDA-Public Use
  Company Number: US-BAYER-2012-041912

PATIENT
  Age: 37 Year
  Sex: Female
  Weight: 126.98 kg

DRUGS (2)
  1. YASMIN [Suspect]
     Indication: DYSMENORRHEA
     Dosage: UNK
     Dates: start: 20030529, end: 20040314
  2. ANTIBIOTICS [Concomitant]
     Dosage: UNK
     Dates: start: 2002, end: 2004

REACTIONS (20)
  - Pulmonary embolism [None]
  - Deep vein thrombosis [Recovered/Resolved]
  - Electrocardiogram ST-T segment abnormal [None]
  - Injury [None]
  - Pain [None]
  - Anxiety [None]
  - General physical health deterioration [None]
  - Emotional distress [None]
  - Chest discomfort [None]
  - Dyspnoea [None]
  - Feeling hot [None]
  - Hyperhidrosis [None]
  - Dizziness [None]
  - Oedema peripheral [Recovered/Resolved]
  - Pain in extremity [Recovered/Resolved]
  - Hypoxia [None]
  - Paraesthesia [Recovered/Resolved]
  - Hypoaesthesia [Recovered/Resolved]
  - Stress [None]
  - Anxiety [None]
